FAERS Safety Report 21441722 (Version 1)
Quarter: 2022Q4

REPORT INFORMATION
  Report Type: Spontaneous
  Country: US (occurrence: US)
  Receive Date: 20221011
  Receipt Date: 20221011
  Transmission Date: 20230113
  Serious: No
  Sender: FDA-Public Use
  Company Number: US-SANOFI-01308248

PATIENT
  Sex: Female

DRUGS (1)
  1. SOLIQUA 100/33 [Suspect]
     Active Substance: INSULIN GLARGINE\LIXISENATIDE
     Dosage: UNK

REACTIONS (6)
  - Vomiting [Unknown]
  - Illness [Unknown]
  - Dyspnoea [Unknown]
  - Gait disturbance [Unknown]
  - Fear [Unknown]
  - Blood glucose increased [Unknown]
